FAERS Safety Report 24117127 (Version 2)
Quarter: 2024Q3

REPORT INFORMATION
  Report Type: Spontaneous
  Country: TR (occurrence: TR)
  Receive Date: 20240722
  Receipt Date: 20240819
  Transmission Date: 20241017
  Serious: Yes (Other)
  Sender: TWI PHARMACEUTICALS
  Company Number: TR-TWI PHARMACEUTICAL, INC-20240700022

PATIENT
  Age: 11 Year
  Sex: Female

DRUGS (1)
  1. TOPIRAMATE [Suspect]
     Active Substance: TOPIRAMATE
     Indication: Epilepsy
     Dosage: 125 MG, / DAY
     Route: 065
     Dates: start: 2018

REACTIONS (1)
  - Lupus-like syndrome [Recovered/Resolved]
